FAERS Safety Report 12729148 (Version 1)
Quarter: 2016Q3

REPORT INFORMATION
  Report Type: Spontaneous
  Country: US (occurrence: US)
  Receive Date: 20160908
  Receipt Date: 20160908
  Transmission Date: 20161109
  Serious: Yes (Hospitalization)
  Sender: FDA-Public Use
  Company Number: None

PATIENT
  Age: 29 Year
  Sex: Female
  Weight: 57.15 kg

DRUGS (11)
  1. VITAMIN C [Concomitant]
     Active Substance: ASCORBIC ACID
  2. NUVIGIL [Suspect]
     Active Substance: ARMODAFINIL
     Indication: CHRONIC FATIGUE SYNDROME
     Route: 048
     Dates: start: 20160702, end: 20160716
  3. PROAIR HFA [Concomitant]
     Active Substance: ALBUTEROL SULFATE
  4. VITAMIN D [Concomitant]
     Active Substance: CHOLECALCIFEROL
  5. VITAMIN B12 [Concomitant]
     Active Substance: CYANOCOBALAMIN
  6. LORATADINE. [Concomitant]
     Active Substance: LORATADINE
  7. IRON [Concomitant]
     Active Substance: IRON
  8. CLINDAMYCIN-BENZOYL PEROXIDE [Concomitant]
  9. GABAPENTIN. [Concomitant]
     Active Substance: GABAPENTIN
  10. DESONIDE. [Concomitant]
     Active Substance: DESONIDE
  11. TRETINOIN. [Concomitant]
     Active Substance: TRETINOIN

REACTIONS (4)
  - Lip swelling [None]
  - Stevens-Johnson syndrome [None]
  - Urticaria [None]
  - Hypersensitivity [None]

NARRATIVE: CASE EVENT DATE: 20160716
